FAERS Safety Report 9646359 (Version 1)
Quarter: 2013Q4

REPORT INFORMATION
  Report Type: Report from Study
  Country: BR (occurrence: BR)
  Receive Date: 20131025
  Receipt Date: 20131025
  Transmission Date: 20140711
  Serious: Yes (Other)
  Sender: FDA-Public Use
  Company Number: PHHY2013BR120776

PATIENT
  Age: 59 Year
  Sex: Female
  Weight: 72 kg

DRUGS (3)
  1. ACLASTA [Suspect]
     Indication: OSTEOPOROSIS
     Dosage: 5 MG, ANNUALLY
     Route: 042
     Dates: start: 201304
  2. BUPROPION [Concomitant]
     Indication: DEPRESSION
     Dosage: 1 TABLET, DAILY
     Route: 048
     Dates: start: 2009
  3. FLUOXETINE [Concomitant]
     Indication: DEPRESSION
     Dosage: 1 TABLET, DAILY
     Route: 048
     Dates: start: 2009

REACTIONS (6)
  - Hypersensitivity [Recovering/Resolving]
  - Increased appetite [Not Recovered/Not Resolved]
  - Influenza [Recovered/Resolved]
  - Chills [Recovered/Resolved]
  - Malaise [Unknown]
  - Pyrexia [Recovered/Resolved]
